FAERS Safety Report 11639442 (Version 1)
Quarter: 2015Q4

REPORT INFORMATION
  Report Type: Report from Study
  Country: TR (occurrence: None)
  Receive Date: 20151015
  Receipt Date: 20151015
  Transmission Date: 20160304
  Serious: Yes (Hospitalization, Other)
  Sender: FDA-Public Use
  Company Number: XMA-000085-2015

PATIENT
  Age: 29 Year
  Sex: Female
  Weight: 80 kg

DRUGS (7)
  1. PREDNOL (METHYLPREDNISOLONE) [Concomitant]
  2. GEVOKIZUMAB [Suspect]
     Active Substance: GEVOKIZUMAB
     Indication: UVEITIS
     Dosage: 60 MG, EVERY 4 WEEKS
     Route: 058
     Dates: start: 20150714
  3. SANDIMMUN (CICLOSPORIN) [Concomitant]
  4. LANSOR (LANSOPRAZOLE) [Concomitant]
  5. COLCHICUM (COLCHICUM AUTUMNALE) [Concomitant]
  6. ANTEPSIN (SYCRALFATE) [Concomitant]
  7. IMURAN [Concomitant]
     Active Substance: AZATHIOPRINE

REACTIONS (2)
  - Vitreous haemorrhage [None]
  - Blindness unilateral [None]

NARRATIVE: CASE EVENT DATE: 20150915
